FAERS Safety Report 19623953 (Version 1)
Quarter: 2021Q3

REPORT INFORMATION
  Report Type: Spontaneous
  Country: IN (occurrence: IN)
  Receive Date: 20210728
  Receipt Date: 20210728
  Transmission Date: 20211014
  Serious: Yes (Death, Other)
  Sender: FDA-Public Use
  Company Number: IN-PFIZER INC-2021583705

PATIENT
  Age: 45 Year
  Sex: Male

DRUGS (10)
  1. COLISTIN [Suspect]
     Active Substance: COLISTIN
     Indication: NOSOCOMIAL INFECTION
     Dosage: UNK
     Dates: start: 20190318
  2. TIGECYCLINE. [Suspect]
     Active Substance: TIGECYCLINE
     Indication: NOSOCOMIAL INFECTION
     Dosage: UNK
     Dates: start: 20190318
  3. VORICONAZOLE. [Suspect]
     Active Substance: VORICONAZOLE
     Indication: PYREXIA
  4. CASPOFUNGIN [Suspect]
     Active Substance: CASPOFUNGIN
     Indication: NOSOCOMIAL INFECTION
     Dosage: UNK
     Dates: start: 20190318
  5. AZITHROMYCIN ANHYDROUS. [Suspect]
     Active Substance: AZITHROMYCIN ANHYDROUS
     Indication: NOSOCOMIAL INFECTION
     Dosage: UNK
     Dates: start: 20190318
  6. VORICONAZOLE. [Suspect]
     Active Substance: VORICONAZOLE
     Indication: NOSOCOMIAL INFECTION
  7. TEICOPLANIN [Suspect]
     Active Substance: TEICOPLANIN
     Indication: NOSOCOMIAL INFECTION
     Dosage: UNK
     Dates: start: 20190318
  8. CASPOFUNGIN [Suspect]
     Active Substance: CASPOFUNGIN
     Indication: NEUTROPENIA
  9. CASPOFUNGIN [Suspect]
     Active Substance: CASPOFUNGIN
     Indication: PYREXIA
  10. VORICONAZOLE. [Suspect]
     Active Substance: VORICONAZOLE
     Indication: NEUTROPENIA
     Dosage: UNK
     Dates: start: 20190318

REACTIONS (1)
  - Acute kidney injury [Fatal]

NARRATIVE: CASE EVENT DATE: 20190324
